FAERS Safety Report 13831478 (Version 1)
Quarter: 2017Q3

REPORT INFORMATION
  Report Type: Spontaneous
  Country: KR (occurrence: KR)
  Receive Date: 20170803
  Receipt Date: 20170803
  Transmission Date: 20171127
  Serious: Yes (Hospitalization, Other)
  Sender: FDA-Public Use
  Company Number: KR-009507513-1703KOR001688

PATIENT
  Age: 61 Year
  Sex: Female
  Weight: 55.6 kg

DRUGS (23)
  1. EMEND (FOSAPREPITANT DIMEGLUMINE) [Suspect]
     Active Substance: FOSAPREPITANT DIMEGLUMINE
     Dosage: 150 MG, ONCE
     Route: 042
     Dates: start: 20161004, end: 20161004
  2. EMEND (FOSAPREPITANT DIMEGLUMINE) [Suspect]
     Active Substance: FOSAPREPITANT DIMEGLUMINE
     Dosage: 150 MG, ONCE
     Route: 042
     Dates: start: 20161115, end: 20161115
  3. ADRIAMYCIN [Concomitant]
     Active Substance: DOXORUBICIN HYDROCHLORIDE
     Dosage: 90 MG, ONCE (CYCLE 4)
     Route: 042
     Dates: start: 20161115, end: 20161115
  4. ENDOXAN [Concomitant]
     Active Substance: CYCLOPHOSPHAMIDE
     Dosage: 894 MG, ONCE (CYCLE 2)
     Route: 042
     Dates: start: 20161004, end: 20161004
  5. DEXAMETHASONE SODIUM PHOSPHATE. [Concomitant]
     Active Substance: DEXAMETHASONE SODIUM PHOSPHATE
     Dosage: 12 MG, ONCE (STRENGTH: 5MG/ML)
     Route: 042
     Dates: start: 20161115, end: 20161115
  6. HEXAMEDINE [Concomitant]
     Indication: PROPHYLAXIS
     Dosage: 15 ML, QD (SOLN), ROUTE: GARGLE.
     Route: 049
     Dates: start: 20160912, end: 201610
  7. MACPERAN [Concomitant]
     Active Substance: METOCLOPRAMIDE HYDROCHLORIDE
     Indication: PROPHYLAXIS OF NAUSEA AND VOMITING
     Dosage: 10 MG, TID
     Route: 048
     Dates: start: 20160912, end: 20161009
  8. ADRIAMYCIN [Concomitant]
     Active Substance: DOXORUBICIN HYDROCHLORIDE
     Dosage: 89 MG, ONCE (CYCLE 2)
     Route: 042
     Dates: start: 20161004, end: 20161004
  9. ENDOXAN [Concomitant]
     Active Substance: CYCLOPHOSPHAMIDE
     Dosage: 900 MG, ONCE (CYCLE 4)
     Route: 042
     Dates: start: 20161115, end: 20161115
  10. DEXAMETHASONE SODIUM PHOSPHATE. [Concomitant]
     Active Substance: DEXAMETHASONE SODIUM PHOSPHATE
     Dosage: 12 MG, ONCE (STRENGTH: 5MG/ML)
     Route: 042
     Dates: start: 20161004, end: 20161004
  11. TYLENOL EXTENDED RELIEF CAPLETS [Concomitant]
     Active Substance: ACETAMINOPHEN
     Indication: PROPHYLAXIS
     Dosage: 2 TABLETS (650 MG), TID, TOTAL DAILY DOSE: 3900 MG
     Route: 048
     Dates: start: 20160912, end: 20161009
  12. NASERON [Concomitant]
     Dosage: 0.3 MG, ONCE (AMP)
     Route: 042
     Dates: start: 20161025, end: 20161025
  13. EMEND (FOSAPREPITANT DIMEGLUMINE) [Suspect]
     Active Substance: FOSAPREPITANT DIMEGLUMINE
     Indication: PROPHYLAXIS OF NAUSEA AND VOMITING
     Dosage: 150 MG, ONCE
     Route: 042
     Dates: start: 20160912, end: 20160912
  14. EMEND (FOSAPREPITANT DIMEGLUMINE) [Suspect]
     Active Substance: FOSAPREPITANT DIMEGLUMINE
     Dosage: 150 MG, ONCE
     Route: 042
     Dates: start: 20161025, end: 20161025
  15. ENDOXAN [Concomitant]
     Active Substance: CYCLOPHOSPHAMIDE
     Dosage: 894 MG, ONCE (CYCLE 3)
     Route: 042
     Dates: start: 20161025, end: 20161025
  16. NASERON [Concomitant]
     Dosage: 0.3 MG, ONCE (AMP)
     Route: 042
     Dates: start: 20161004, end: 20161004
  17. ADRIAMYCIN [Concomitant]
     Active Substance: DOXORUBICIN HYDROCHLORIDE
     Indication: BREAST CANCER
     Dosage: 89 MG, ONCE (CYCLE 1)
     Route: 042
     Dates: start: 20160912, end: 20160912
  18. DEXAMETHASONE SODIUM PHOSPHATE. [Concomitant]
     Active Substance: DEXAMETHASONE SODIUM PHOSPHATE
     Indication: PREMEDICATION
     Dosage: 12 MG, ONCE (STRENGTH: 5MG/ML)
     Route: 042
     Dates: start: 20160912, end: 20160912
  19. DEXAMETHASONE SODIUM PHOSPHATE. [Concomitant]
     Active Substance: DEXAMETHASONE SODIUM PHOSPHATE
     Dosage: 12 MG, ONCE (STRENGTH: 5MG/ML)
     Route: 042
     Dates: start: 20161025, end: 20161025
  20. NASERON [Concomitant]
     Dosage: 0.3 MG, ONCE (AMP)
     Route: 042
     Dates: start: 20161115, end: 20161115
  21. ADRIAMYCIN [Concomitant]
     Active Substance: DOXORUBICIN HYDROCHLORIDE
     Dosage: 89 MG, ONCE (CYCLE 3)
     Route: 042
     Dates: start: 20161025, end: 20161025
  22. ENDOXAN [Concomitant]
     Active Substance: CYCLOPHOSPHAMIDE
     Indication: BREAST CANCER
     Dosage: 894 MG, ONCE (CYCLE 1)
     Route: 042
     Dates: start: 20160912, end: 20160912
  23. NASERON [Concomitant]
     Indication: PREMEDICATION
     Dosage: 0.3 MG, ONCE (AMP)
     Route: 042
     Dates: start: 20160912, end: 20160912

REACTIONS (3)
  - Urinary tract infection [Recovered/Resolved]
  - Febrile neutropenia [Recovered/Resolved]
  - Rhinorrhoea [Recovered/Resolved]

NARRATIVE: CASE EVENT DATE: 20160922
